FAERS Safety Report 6417570-4 (Version None)
Quarter: 2009Q4

REPORT INFORMATION
  Report Type: 
  Country: None (occurrence: None)
  Receive Date: 20091028
  Receipt Date: 20091014
  Transmission Date: 20100525
  Serious: Yes (Death)
  Sender: FDA-Public Use
  Company Number: KR-ROCHE-663189

PATIENT
  Age: 67 Year
  Sex: Female

DRUGS (1)
  1. TAMIFLU [Suspect]
     Route: 065
     Dates: start: 20091005

REACTIONS (2)
  - ACUTE RESPIRATORY FAILURE [None]
  - MULTI-ORGAN FAILURE [None]
